FAERS Safety Report 9257303 (Version 1)
Quarter: 2013Q1

REPORT INFORMATION
  Report Type: Spontaneous
  Country: US (occurrence: None)
  Receive Date: 20121212
  Receipt Date: 20121212
  Transmission Date: 20140127
  Serious: No
  Sender: FDA-Public Use
  Company Number: 1209USA007102

PATIENT
  Age: 54 Year
  Sex: Male

DRUGS (2)
  1. PEGINTERFERON ALFA-2B [Suspect]
     Dates: start: 201206
  2. VICTRELIS [Suspect]
     Route: 048
     Dates: start: 201206

REACTIONS (3)
  - Nocturia [None]
  - Fatigue [None]
  - Pollakiuria [None]
